FAERS Safety Report 5066304-7 (Version None)
Quarter: 2006Q3

REPORT INFORMATION
  Report Type: 
  Country: None (occurrence: None)
  Receive Date: 20060719
  Receipt Date: 20060607
  Transmission Date: 20061208
  Serious: Yes (Hospitalization)
  Sender: FDA-Public Use
  Company Number: US-JNJFOC-20060602285

PATIENT
  Age: 90 Year
  Sex: Female

DRUGS (1)
  1. RAZADYNE ER [Suspect]
     Indication: DEMENTIA ALZHEIMER'S TYPE
     Dosage: 8 MG, 1 IN 1 DAY, ORAL
     Route: 048

REACTIONS (2)
  - AGGRESSION [None]
  - CONFUSIONAL STATE [None]
